FAERS Safety Report 16805371 (Version 1)
Quarter: 2019Q3

REPORT INFORMATION
  Report Type: Spontaneous
  Country: US (occurrence: US)
  Receive Date: 20190724
  Receipt Date: 20190724
  Transmission Date: 20191005
  Serious: No
  Sender: FDA-Public Use
  Company Number: None

PATIENT
  Age: 70 Year
  Sex: Female

DRUGS (2)
  1. AFINITOR [Suspect]
     Active Substance: EVEROLIMUS
     Route: 048
     Dates: start: 201904
  2. FULVESTRANT. [Concomitant]
     Active Substance: FULVESTRANT

REACTIONS (1)
  - Disease progression [None]

NARRATIVE: CASE EVENT DATE: 20190724
